FAERS Safety Report 25602162 (Version 1)
Quarter: 2025Q3

REPORT INFORMATION
  Report Type: Spontaneous
  Country: JP (occurrence: JP)
  Receive Date: 20250724
  Receipt Date: 20250724
  Transmission Date: 20251021
  Serious: Yes (Other)
  Sender: ANI
  Company Number: JP-ANIPHARMA-2025-JP-000110

PATIENT
  Age: 78 Year
  Sex: Female

DRUGS (1)
  1. ARIMIDEX [Suspect]
     Active Substance: ANASTROZOLE
     Indication: Product used for unknown indication

REACTIONS (5)
  - Hypothermia [Unknown]
  - Hyperhidrosis [Unknown]
  - Nausea [Unknown]
  - Blood pressure systolic increased [Unknown]
  - Weight decreased [Unknown]

NARRATIVE: CASE EVENT DATE: 20250711
